FAERS Safety Report 25418313 (Version 2)
Quarter: 2025Q2

REPORT INFORMATION
  Report Type: Spontaneous
  Country: NL (occurrence: NL)
  Receive Date: 20250610
  Receipt Date: 20250612
  Transmission Date: 20250717
  Serious: Yes (Other)
  Sender: BAYER HEALTHCARE PHARMACEUTICALS INC.
  Company Number: NL-BAYER-2025A073127

PATIENT
  Sex: Female

DRUGS (2)
  1. MIRENA [Suspect]
     Active Substance: LEVONORGESTREL
     Indication: Contraception
     Dosage: 20?G/DAY
     Route: 015
     Dates: start: 20210728
  2. MIRENA [Suspect]
     Active Substance: LEVONORGESTREL
     Indication: Heavy menstrual bleeding

REACTIONS (2)
  - Device breakage [None]
  - Complication of device removal [None]
